FAERS Safety Report 10101656 (Version 1)
Quarter: 2014Q2

REPORT INFORMATION
  Report Type: Spontaneous
  Country: GB (occurrence: GB)
  Receive Date: 20140424
  Receipt Date: 20140424
  Transmission Date: 20141212
  Serious: Yes (Death, Other)
  Sender: FDA-Public Use
  Company Number: GB-TEVA-477247ISR

PATIENT
  Age: 58 Year
  Sex: Male

DRUGS (11)
  1. TEMOZOLOMIDE [Suspect]
     Route: 065
  2. TAZOCIN [Suspect]
     Indication: PANCYTOPENIA
     Route: 065
  3. TAZOCIN [Suspect]
     Indication: PNEUMONIA
  4. SODIUM CHLORIDE [Suspect]
     Indication: PANCYTOPENIA
     Dosage: 0.9%
     Route: 042
  5. SODIUM CHLORIDE [Suspect]
     Indication: PNEUMONIA
  6. FILGRASTIM [Concomitant]
     Indication: PANCYTOPENIA
     Route: 065
  7. FILGRASTIM [Concomitant]
     Indication: PNEUMONIA
  8. ATENOLOL [Concomitant]
     Dosage: UNCLEAR IF PATIENT WAS RECEIVING DRUG AT THE TIME OF ADR ONSET
     Route: 065
  9. LISINOPRIL [Concomitant]
     Dosage: UNCLEAR IF PATIENT WAS RECEIVING DRUG AT THE TIME OF ADR ONSET
     Route: 065
  10. METFORMIN [Concomitant]
     Dosage: UNCLEAR IF PATIENT WAS RECEIVING DRUG AT THE TIME OF ADR ONSET
     Route: 065
  11. LEVOTHYROXINE SODIUM [Concomitant]
     Dosage: UNCLEAR IF PATIENT WAS RECEIVING DRUG AT THE TIME OF ADR ONSET
     Route: 065

REACTIONS (3)
  - Demyelination [Fatal]
  - Hypernatraemia [Unknown]
  - Hyperglycaemia [Unknown]
